FAERS Safety Report 7798011-1 (Version None)
Quarter: 2011Q4

REPORT INFORMATION
  Report Type: 
  Country: None (occurrence: None)
  Receive Date: 20111005
  Receipt Date: 20110928
  Transmission Date: 20120403
  Serious: Yes (Other)
  Sender: FDA-Public Use
  Company Number: US-BAYER-2011-078835

PATIENT
  Age: 50 Year
  Sex: Male

DRUGS (2)
  1. SORAFENIB (RAF KINASE INHIBITOR) [Suspect]
     Indication: PRODUCT USED FOR UNKNOWN INDICATION
     Dosage: 200 MG, BID
     Dates: start: 20110808, end: 20110906
  2. SORAFENIB (RAF KINASE INHIBITOR) [Suspect]
     Dosage: UNK
     Dates: start: 20110913

REACTIONS (12)
  - ASTHENIA [None]
  - DECREASED APPETITE [None]
  - NEURALGIA [None]
  - ABASIA [None]
  - SKIN EXFOLIATION [None]
  - BLOOD PRESSURE INCREASED [None]
  - FLANK PAIN [None]
  - LOWER EXTREMITY MASS [None]
  - OEDEMA PERIPHERAL [None]
  - SKIN ULCER [None]
  - PAIN IN EXTREMITY [None]
  - UPPER EXTREMITY MASS [None]
